FAERS Safety Report 24815062 (Version 1)
Quarter: 2025Q1

REPORT INFORMATION
  Report Type: Spontaneous
  Country: CN (occurrence: CN)
  Receive Date: 20250107
  Receipt Date: 20250107
  Transmission Date: 20250408
  Serious: Yes (Other)
  Sender: PFIZER
  Company Number: CN-PFIZER INC-PV202500000309

PATIENT
  Age: 32 Year
  Sex: Female
  Weight: 61 kg

DRUGS (1)
  1. CARBOPROST TROMETHAMINE [Suspect]
     Active Substance: CARBOPROST TROMETHAMINE
     Indication: Uterine hypotonus
     Dosage: 250 UG, 1X/DAY
     Route: 019
     Dates: start: 20241225, end: 20241225

REACTIONS (3)
  - Rash [Recovered/Resolved]
  - Urticaria [Recovered/Resolved]
  - Off label use [Unknown]

NARRATIVE: CASE EVENT DATE: 20241225
